FAERS Safety Report 4621661-8 (Version None)
Quarter: 2005Q1

REPORT INFORMATION
  Report Type: 
  Country: None (occurrence: None)
  Receive Date: 20050328
  Receipt Date: 20050316
  Transmission Date: 20050727
  Serious: Yes (Disabling)
  Sender: FDA-Public Use
  Company Number: USA-2004-0012459

PATIENT
  Age: 23 Year
  Sex: Male
  Weight: 75.3 kg

DRUGS (3)
  1. OXYCONTIN [Suspect]
     Indication: PAIN
     Dosage: SEE IMAGE
  2. SOMA [Concomitant]
  3. ETHYL CHLORIDE (ETHYL CHLORIDE) [Concomitant]

REACTIONS (3)
  - CULTURE WOUND POSITIVE [None]
  - DYSPHEMIA [None]
  - MYCOBACTERIAL INFECTION [None]
